FAERS Safety Report 8658885 (Version 2)
Quarter: 2013Q2

REPORT INFORMATION
  Report Type: Spontaneous
  Country: US (occurrence: US)
  Receive Date: 20120710
  Receipt Date: 20130430
  Transmission Date: 20140414
  Serious: Yes (Other)
  Sender: FDA-Public Use
  Company Number: US-FRI-1000036789

PATIENT
  Age: 74 Year
  Sex: Male
  Weight: 111 kg

DRUGS (17)
  1. TEFLARO [Suspect]
     Indication: STAPHYLOCOCCAL INFECTION
     Dosage: 1200 MG
     Route: 042
     Dates: start: 20120217, end: 20120330
  2. TEFLARO [Suspect]
     Indication: KNEE ARTHROPLASTY
  3. WARFARIN [Concomitant]
     Dosage: 5 MG
     Route: 048
  4. ENOXAPARIN [Concomitant]
     Dosage: 40 MG
     Route: 058
  5. METFORMIN [Concomitant]
     Dosage: 500 MG
     Route: 048
  6. GLYBURIDE [Concomitant]
     Dosage: 5 MG
     Route: 048
  7. MULTIVITAMIN [Concomitant]
  8. ASCORBIC ACID [Concomitant]
     Dosage: 1000 MG
  9. TAMSULOSIN [Concomitant]
     Dosage: 0.8 MG
     Route: 048
  10. NIACIN [Concomitant]
     Dosage: 1000 MG
     Route: 048
  11. DUTASTERIDE [Concomitant]
     Dosage: 0.5 MG
     Route: 048
  12. CO-ENZYMES Q10 [Concomitant]
     Dosage: 400 MG
     Route: 048
  13. OXYCODONE [Concomitant]
     Indication: PAIN
     Route: 048
  14. ACETAMINOPHEN [Concomitant]
     Route: 048
  15. DIPHENHYDRAMINE [Concomitant]
     Indication: INSOMNIA
     Route: 048
  16. METAXALONE [Concomitant]
     Route: 048
  17. SENNA [Concomitant]
     Indication: CONSTIPATION

REACTIONS (1)
  - Leukopenia [Recovered/Resolved]
